FAERS Safety Report 24700970 (Version 4)
Quarter: 2025Q2

REPORT INFORMATION
  Report Type: Spontaneous
  Country: US (occurrence: US)
  Receive Date: 20241205
  Receipt Date: 20250409
  Transmission Date: 20250717
  Serious: Yes (Other)
  Sender: JOHNSON AND JOHNSON
  Company Number: US-JNJFOC-20241131682

PATIENT
  Age: 46 Year
  Sex: Female

DRUGS (6)
  1. STELARA [Suspect]
     Active Substance: USTEKINUMAB
     Indication: Crohn^s disease
  2. STELARA [Suspect]
     Active Substance: USTEKINUMAB
     Dosage: 90.00 MG/ML
     Route: 058
  3. AMLODIPINE [Concomitant]
     Active Substance: AMLODIPINE BESYLATE
     Indication: Hypertension
     Route: 048
  4. CARAFATE [Concomitant]
     Active Substance: SUCRALFATE
     Indication: Gastrooesophageal reflux disease
     Route: 048
  5. CHOLECALCIFEROL [Concomitant]
     Active Substance: CHOLECALCIFEROL
     Indication: Vitamin D deficiency
     Route: 048
  6. HYDROCHLOROTHIAZIDE [Concomitant]
     Active Substance: HYDROCHLOROTHIAZIDE
     Indication: Hypertension
     Route: 048

REACTIONS (3)
  - Crohn^s disease [Unknown]
  - Product dose omission issue [Unknown]
  - Device issue [Unknown]

NARRATIVE: CASE EVENT DATE: 20241112
